FAERS Safety Report 7742173-9 (Version None)
Quarter: 2011Q3

REPORT INFORMATION
  Report Type: 
  Country: None (occurrence: None)
  Receive Date: 20110912
  Receipt Date: 20110901
  Transmission Date: 20111222
  Serious: Yes (Hospitalization)
  Sender: FDA-Public Use
  Company Number: US-JNJFOC-20110901965

PATIENT
  Sex: Male
  Weight: 57.7 kg

DRUGS (4)
  1. ACETAMINOPHEN [Concomitant]
  2. DIPHENHYDRAMINE HCL [Concomitant]
  3. REMICADE [Suspect]
     Indication: INFLAMMATORY BOWEL DISEASE
     Route: 042
     Dates: start: 20100913
  4. LIDOCAINE/PRILOCAINE [Concomitant]

REACTIONS (2)
  - LARGE INTESTINE PERFORATION [None]
  - FALL [None]
